FAERS Safety Report 16132919 (Version 2)
Quarter: 2019Q2

REPORT INFORMATION
  Report Type: Report from Study
  Country: US (occurrence: US)
  Receive Date: 20190329
  Receipt Date: 20190424
  Transmission Date: 20190711
  Serious: No
  Sender: FDA-Public Use
  Company Number: US-SA-2019SA080912

PATIENT
  Age: 76 Year
  Sex: Female

DRUGS (1)
  1. DUPILUMAB [Suspect]
     Active Substance: DUPILUMAB
     Indication: ASTHMA
     Dosage: 600 MG, 1X
     Route: 058
     Dates: start: 20190321, end: 20190321

REACTIONS (11)
  - Sinus disorder [Recovered/Resolved]
  - Swelling face [Unknown]
  - Heart rate abnormal [Unknown]
  - Asthenia [Not Recovered/Not Resolved]
  - Asthma [Recovered/Resolved]
  - Hypersensitivity [Unknown]
  - Viral infection [Recovered/Resolved]
  - Paraesthesia [Unknown]
  - Swollen tongue [Unknown]
  - Secretion discharge [Recovered/Resolved]
  - Lip swelling [Recovered/Resolved]

NARRATIVE: CASE EVENT DATE: 20190321
